FAERS Safety Report 8763962 (Version 1)
Quarter: 2012Q4

REPORT INFORMATION
  Report Type: 
  Country: US (occurrence: US)
  Receive Date: 20120831
  Receipt Date: 20120831
  Transmission Date: 20130627
  Serious: Yes (Other)
  Sender: FDA-Public Use
  Company Number: US-JNJFOC-20120813292

PATIENT
  Age: 78 Year

DRUGS (3)
  1. REMICADE [Suspect]
     Indication: RHEUMATOID ARTHRITIS
     Route: 042
  2. REMICADE [Suspect]
     Indication: RHEUMATOID ARTHRITIS
     Dosage: 2nd infusion after rechallenge
     Route: 042
     Dates: start: 20120808
  3. SOLU-MEDROL [Concomitant]
     Indication: PREMEDICATION
     Route: 065
     Dates: start: 20120808

REACTIONS (4)
  - Chest pain [Unknown]
  - Vomiting [Unknown]
  - Dizziness [Unknown]
  - Infusion related reaction [Unknown]
